FAERS Safety Report 7436724-1 (Version None)
Quarter: 2011Q1

REPORT INFORMATION
  Report Type: 
  Country: None (occurrence: None)
  Receive Date: 20110302
  Receipt Date: 20101116
  Transmission Date: 20110831
  Serious: No
  Sender: FDA-Public Use
  Company Number: 022240

PATIENT
  Sex: Female

DRUGS (6)
  1. CIMZIA [Suspect]
     Indication: CROHN'S DISEASE
     Dosage: 400 MG 1X/4 WEEKS SUBCUTANEOUS
     Route: 058
     Dates: start: 20100823, end: 20101019
  2. LORAZEPAM [Concomitant]
  3. LEVOTHYROXINE SODIUM [Concomitant]
  4. MESALAMINE [Concomitant]
  5. ZANAFLEX [Concomitant]
  6. FERROUS SULFATE TAB [Concomitant]

REACTIONS (2)
  - ALOPECIA [None]
  - INJECTION SITE NODULE [None]
